FAERS Safety Report 16473811 (Version 2)
Quarter: 2019Q3

REPORT INFORMATION
  Report Type: Report from Study
  Country: US (occurrence: US)
  Receive Date: 20190625
  Receipt Date: 20190708
  Transmission Date: 20191004
  Serious: Yes (Other)
  Sender: FDA-Public Use
  Company Number: US-PFIZER INC-2019269358

PATIENT
  Age: 64 Year
  Sex: Female

DRUGS (2)
  1. IBRANCE [Suspect]
     Active Substance: PALBOCICLIB
     Dosage: 100 MG, CYCLIC (FOR 21 DAYS OF 28 DAY CYCLE)
     Route: 048
     Dates: start: 20190529, end: 20190612
  2. IBRANCE [Suspect]
     Active Substance: PALBOCICLIB
     Indication: BREAST CANCER FEMALE
     Dosage: 125 MG, DAILY
     Route: 048
     Dates: start: 20190423, end: 20190430

REACTIONS (9)
  - Nausea [Unknown]
  - Chest pain [Unknown]
  - Bone pain [Unknown]
  - Leukopenia [Unknown]
  - Vomiting [Unknown]
  - Bone marrow failure [Unknown]
  - Neutropenia [Unknown]
  - Stomatitis [Unknown]
  - Fatigue [Unknown]

NARRATIVE: CASE EVENT DATE: 2019
